FAERS Safety Report 5498605-2 (Version None)
Quarter: 2007Q4

REPORT INFORMATION
  Report Type: 
  Country: None (occurrence: None)
  Receive Date: 20071025
  Receipt Date: 20071025
  Transmission Date: 20080405
  Serious: No
  Sender: FDA-Public Use
  Company Number: None

PATIENT

DRUGS (2)
  1. LOTREL [Suspect]
     Indication: HYPERTENSION
     Dosage: 5MG/20MG QD PO
     Route: 048
  2. AMLODIPINE / BENAZEPRIL 5MG/20MG NOVARTIS / SANDOZ [Suspect]
     Indication: HYPERTENSION
     Dosage: 5MG/20MG QD PO
     Route: 048

REACTIONS (1)
  - PHARMACEUTICAL PRODUCT COMPLAINT [None]
